FAERS Safety Report 5281380-4 (Version None)
Quarter: 2007Q1

REPORT INFORMATION
  Report Type: 
  Country: None (occurrence: None)
  Receive Date: 20070323
  Receipt Date: 20070323
  Transmission Date: 20070707
  Serious: Yes (Life-Threatening, Hospitalization, Disabling, Other)
  Sender: FDA-Public Use
  Company Number: None

PATIENT
  Age: 39 Year
  Sex: Female
  Weight: 113.3993 kg

DRUGS (2)
  1. CHANTIX [Suspect]
     Indication: SMOKING CESSATION THERAPY
     Dosage: STARTER PACKAGE 1 PER DAY THEN 2 PO
     Route: 048
     Dates: start: 20070305, end: 20070310
  2. EFFEXOR [Suspect]
     Indication: ANXIETY
     Dosage: 150 MG PER DAY 1 PR DAY PO
     Route: 048
     Dates: start: 20041110, end: 20070322

REACTIONS (3)
  - GRAND MAL CONVULSION [None]
  - HEMIPARESIS [None]
  - SPEECH DISORDER [None]
